FAERS Safety Report 5213491-3 (Version None)
Quarter: 2007Q1

REPORT INFORMATION
  Report Type: 
  Country: None (occurrence: None)
  Receive Date: 20070119
  Receipt Date: 20070109
  Transmission Date: 20070707
  Serious: Yes (Other)
  Sender: FDA-Public Use
  Company Number: US-SANOFI-SYNTHELABO-A03200700304

PATIENT
  Age: 69 Year
  Sex: Male

DRUGS (5)
  1. NEURONTIN [Concomitant]
     Dosage: UNK
     Route: 048
  2. CYMBALTA [Concomitant]
     Dosage: UNK
     Route: 048
  3. INDERAL [Concomitant]
     Dosage: UNK
     Route: 048
  4. NEXIUM [Concomitant]
     Dosage: UNK
     Route: 048
  5. AMBIEN [Suspect]
     Indication: INSOMNIA
     Route: 048

REACTIONS (6)
  - ACCIDENT [None]
  - AGGRESSION [None]
  - FALL [None]
  - SKIN EXFOLIATION [None]
  - SKIN LACERATION [None]
  - SLEEP WALKING [None]
